FAERS Safety Report 6131891-4 (Version None)
Quarter: 2009Q1

REPORT INFORMATION
  Report Type: 
  Country: None (occurrence: None)
  Receive Date: 20090325
  Receipt Date: 20090316
  Transmission Date: 20090719
  Serious: Yes (Death, Hospitalization)
  Sender: FDA-Public Use
  Company Number: US-AVENTIS-200912173US

PATIENT
  Sex: Female

DRUGS (1)
  1. ENOXAPARIN [Suspect]
     Indication: THROMBOSIS PROPHYLAXIS
     Dosage: DOSE: UNK
     Dates: start: 20080601, end: 20080101

REACTIONS (7)
  - ANAPHYLACTIC REACTION [None]
  - DEATH [None]
  - DISORIENTATION [None]
  - DYSPNOEA [None]
  - FEELING HOT [None]
  - HYPERSENSITIVITY [None]
  - PRODUCT CONTAMINATION [None]
